FAERS Safety Report 5970249-5 (Version None)
Quarter: 2008Q4

REPORT INFORMATION
  Report Type: 
  Country: None (occurrence: None)
  Receive Date: 20081126
  Receipt Date: 20081118
  Transmission Date: 20090506
  Serious: Yes (Other)
  Sender: FDA-Public Use
  Company Number: SE-PFIZER INC-2008098307

PATIENT
  Age: 59 Year
  Sex: Male

DRUGS (14)
  1. LYRICA [Suspect]
     Indication: GENERALISED ANXIETY DISORDER
     Route: 048
     Dates: start: 20080815
  2. PULMICORT [Concomitant]
     Route: 055
  3. PAPAVERIN [Concomitant]
  4. ALPRAZOLAM [Concomitant]
  5. OXASCAND [Concomitant]
  6. RHINOCORT [Concomitant]
  7. LORATADINE [Concomitant]
  8. OMEPRAZOLE [Concomitant]
  9. FOLACIN [Concomitant]
  10. SALURES [Concomitant]
  11. ENALAPRIL MALEATE [Concomitant]
  12. BRICANYL [Concomitant]
  13. CIPROFLOXACIN [Concomitant]
     Dosage: FREQ:ONE TWICE A DAY WHEN NEEDED
  14. ZOLPIDEM TARTRATE [Concomitant]

REACTIONS (2)
  - MENTAL IMPAIRMENT [None]
  - MONOPARESIS [None]
